FAERS Safety Report 9354653 (Version 2)
Quarter: 2013Q3

REPORT INFORMATION
  Report Type: Spontaneous
  Country: SK (occurrence: SK)
  Receive Date: 20130618
  Receipt Date: 20130712
  Transmission Date: 20140515
  Serious: Yes (Hospitalization, Other)
  Sender: FDA-Public Use
  Company Number: SK-ELI_LILLY_AND_COMPANY-SK201306003703

PATIENT
  Sex: Female

DRUGS (19)
  1. FORSTEO [Suspect]
     Indication: OSTEOPOROSIS POSTMENOPAUSAL
     Dosage: 20 UG, QD
     Route: 058
     Dates: start: 20130114
  2. AGEN [Concomitant]
  3. TICLODIPINE [Concomitant]
  4. MAGNESII LACTICI [Concomitant]
  5. CORVATON [Concomitant]
  6. CYNT [Concomitant]
  7. HELICID [Concomitant]
  8. THEOPLUS [Concomitant]
  9. ATROVENT [Concomitant]
  10. TRAMAL [Concomitant]
  11. LYRICA [Concomitant]
  12. XANAX [Concomitant]
  13. PARACETAMOL [Concomitant]
  14. KATADOLON                          /00890102/ [Concomitant]
  15. EUTHYROX [Concomitant]
  16. CALTRATE                           /00751519/ [Concomitant]
  17. TRIMETAZIDINE [Concomitant]
  18. EBRANTIL                           /00631801/ [Concomitant]
  19. TALLITON [Concomitant]

REACTIONS (2)
  - Cerebral ischaemia [Recovered/Resolved]
  - Hypertension [Recovered/Resolved]
